FAERS Safety Report 9307849 (Version 4)
Quarter: 2014Q1

REPORT INFORMATION
  Report Type: Spontaneous
  Country: US (occurrence: US)
  Receive Date: 20130524
  Receipt Date: 20140124
  Transmission Date: 20141002
  Serious: Yes (Hospitalization, Other)
  Sender: FDA-Public Use
  Company Number: US-JNJFOC-20130511318

PATIENT
  Age: 68 Year
  Sex: Male
  Weight: 80.51 kg

DRUGS (8)
  1. OMEPRAZOLE [Concomitant]
     Indication: GASTROOESOPHAGEAL REFLUX DISEASE
     Route: 048
  2. FOLIC ACID [Concomitant]
     Dosage: ^TO REPLACE FROM LOSING IT TO OTHER MEDICATIONS^
     Route: 048
  3. REMICADE [Suspect]
     Indication: COLITIS ULCERATIVE
     Route: 042
  4. REMICADE [Suspect]
     Indication: COLITIS ULCERATIVE
     Route: 042
     Dates: start: 20130625
  5. REMICADE [Suspect]
     Indication: COLITIS ULCERATIVE
     Route: 042
     Dates: start: 2005
  6. ALDACTONE [Concomitant]
     Indication: BLOOD PRESSURE
     Dosage: HALF OF A 100 MG TABLET
     Route: 065
     Dates: start: 201303
  7. NADOLOL [Concomitant]
     Indication: BLOOD PRESSURE
     Route: 048
     Dates: start: 201303
  8. LOMOTIL [Concomitant]
     Indication: DIARRHOEA
     Dosage: AS NEEDED
     Route: 048
     Dates: start: 201304

REACTIONS (5)
  - Chest pain [Unknown]
  - Weight decreased [Unknown]
  - Cytomegalovirus infection [Recovering/Resolving]
  - Drug effect decreased [Recovering/Resolving]
  - Drug ineffective [Not Recovered/Not Resolved]
